FAERS Safety Report 7274324-7 (Version None)
Quarter: 2011Q1

REPORT INFORMATION
  Report Type: 
  Country: None (occurrence: None)
  Receive Date: 20110131
  Receipt Date: 20110131
  Transmission Date: 20110831
  Serious: Yes (Hospitalization)
  Sender: FDA-Public Use
  Company Number: None

PATIENT
  Age: 35 Year
  Sex: Male

DRUGS (1)
  1. ENBREL [Suspect]
     Indication: PSORIATIC ARTHROPATHY
     Dosage: 50MG EACH WEEK SQ
     Dates: start: 20100610, end: 20110101

REACTIONS (2)
  - THROMBOCYTOPENIA [None]
  - HYPERSPLENISM [None]
